FAERS Safety Report 9173884 (Version 3)
Quarter: 2013Q2

REPORT INFORMATION
  Report Type: Spontaneous
  Country: US (occurrence: None)
  Receive Date: 20130318
  Receipt Date: 20130619
  Transmission Date: 20140414
  Serious: Yes (Hospitalization)
  Sender: FDA-Public Use
  Company Number: SP06442

PATIENT
  Age: 53 Year
  Sex: Female

DRUGS (3)
  1. OSMOPREP [Suspect]
     Route: 048
     Dates: start: 20130220, end: 20130220
  2. LISINOPRIL/HYDROCHLOROTHIAZIDE [Concomitant]
  3. NAPROXEN [Concomitant]

REACTIONS (9)
  - Flatulence [None]
  - Nausea [None]
  - Back pain [None]
  - Chest discomfort [None]
  - Renal failure acute [None]
  - Decreased appetite [None]
  - Dysgeusia [None]
  - Aphagia [None]
  - Fluid intake reduced [None]
